FAERS Safety Report 4456599-2 (Version None)
Quarter: 2004Q3

REPORT INFORMATION
  Report Type: 
  Country: None (occurrence: None)
  Receive Date: 20040921
  Receipt Date: 20040908
  Transmission Date: 20050211
  Serious: Yes (Death, Hospitalization)
  Sender: FDA-Public Use
  Company Number: 9715728

PATIENT
  Age: 15 Year
  Sex: Female
  Weight: 73 kg

DRUGS (2)
  1. AMLODIPINE [Suspect]
     Indication: ILL-DEFINED DISORDER
     Dosage: 140 MG (1 IN 1 D), ORAL
     Route: 048
     Dates: start: 19970101, end: 19970101
  2. PONSTAN (MEFENAMIC ACID) (MEFANAMIC ACID) [Suspect]
     Indication: ILL-DEFINED DISORDER
     Dosage: (1 IN 1 D), ORAL
     Route: 048
     Dates: start: 19970101, end: 19970101

REACTIONS (10)
  - ASPIRATION [None]
  - CARDIO-RESPIRATORY ARREST [None]
  - CYANOSIS [None]
  - DYSPNOEA [None]
  - HEART RATE INCREASED [None]
  - HYPOTENSION [None]
  - MULTIPLE DRUG OVERDOSE INTENTIONAL [None]
  - MUSCLE SPASMS [None]
  - PULMONARY CONGESTION [None]
  - PULMONARY OEDEMA [None]
